FAERS Safety Report 9265095 (Version 2)
Quarter: 2013Q2

REPORT INFORMATION
  Report Type: Spontaneous
  Country: US (occurrence: US)
  Receive Date: 20130501
  Receipt Date: 20130520
  Transmission Date: 20140414
  Serious: Yes (Other)
  Sender: FDA-Public Use
  Company Number: US-PFIZER INC-2013130666

PATIENT
  Age: 59 Year
  Sex: Male
  Weight: 70.3 kg

DRUGS (16)
  1. VIAGRA [Suspect]
     Indication: ERECTILE DYSFUNCTION
     Dosage: 50 MG, AS NEEDED
     Route: 048
  2. VIAGRA [Suspect]
     Dosage: 100 MG, AS NEEDED
     Route: 048
  3. VIAGRA [Suspect]
     Dosage: UNK, AS NEEDED
     Route: 048
  4. ALPRAZOLAM [Concomitant]
     Dosage: 2 MG, 5X/DAY
  5. DIPHENOXYLATE W/ATROPINE SULFATE [Concomitant]
     Dosage: UNK
  6. DOXEPIN [Concomitant]
     Dosage: 200 MG (TWO CAPSULES OF 100MG), 1X/DAY
  7. LAMOTRIGINE [Concomitant]
     Dosage: 200 MG, 1X/DAY
  8. BISOPROLOL FUMARATE/HYDROCHLOROTHIAZIDE [Concomitant]
     Dosage: UNK
  9. VITAMIN D [Concomitant]
     Dosage: 50000 IU, WEEKLY
  10. ACETAMINOPHEN W/OXYCODONE [Concomitant]
     Dosage: 325/10 MG, AS NEEDED
  11. ASPIRIN [Concomitant]
     Indication: PROPHYLAXIS
     Dosage: 81 MG, UNK
  12. ZYPREXA [Concomitant]
     Dosage: 20 MG, 1X/DAY
  13. DICYCLOMINE [Concomitant]
     Dosage: 20 MG, AS NEEDED
  14. OXYBUTYNIN [Concomitant]
     Dosage: 100 MG, UNK
  15. RITALIN [Concomitant]
     Dosage: UNK
  16. CHOLESTYRAMINE RESIN [Concomitant]
     Dosage: UNK

REACTIONS (3)
  - Erection increased [Unknown]
  - Vitamin B complex deficiency [Unknown]
  - Blood triglycerides increased [Unknown]
